FAERS Safety Report 11484283 (Version 1)
Quarter: 2015Q3

REPORT INFORMATION
  Report Type: Spontaneous
  Country: US (occurrence: None)
  Receive Date: 20150909
  Receipt Date: 20150909
  Transmission Date: 20151125
  Serious: No
  Sender: FDA-Public Use
  Company Number: None

PATIENT
  Age: 58 Year
  Sex: Female

DRUGS (1)
  1. FORTEO [Suspect]
     Active Substance: TERIPARATIDE
     Indication: OSTEOPOROSIS
     Route: 058
     Dates: start: 20150503, end: 20150703

REACTIONS (6)
  - Vomiting [None]
  - Trismus [None]
  - Erythema [None]
  - Insomnia [None]
  - Swelling [None]
  - Back pain [None]

NARRATIVE: CASE EVENT DATE: 20150703
